FAERS Safety Report 6831464-1 (Version None)
Quarter: 2010Q3

REPORT INFORMATION
  Report Type: 
  Country: None (occurrence: None)
  Receive Date: 20100712
  Receipt Date: 20100706
  Transmission Date: 20110219
  Serious: Yes (Other)
  Sender: FDA-Public Use
  Company Number: B0604438A

PATIENT
  Sex: Female

DRUGS (1)
  1. AVAMYS [Suspect]
     Route: 045
     Dates: start: 20090101, end: 20090101

REACTIONS (1)
  - ENCEPHALITIS [None]
